FAERS Safety Report 12758319 (Version 1)
Quarter: 2016Q3

REPORT INFORMATION
  Report Type: Spontaneous
  Country: US (occurrence: US)
  Receive Date: 20160915
  Receipt Date: 20160915
  Transmission Date: 20161109
  Serious: No
  Sender: FDA-Public Use
  Company Number: None

PATIENT
  Age: 83 Year
  Sex: Male

DRUGS (1)
  1. NEXAVAR [Suspect]
     Active Substance: SORAFENIB
     Indication: THYROID CANCER
     Dosage: 400MG TWICE A DAY FOR 4 WEEKS ON, ORAL
     Route: 048
     Dates: start: 20131030

REACTIONS (5)
  - Fatigue [None]
  - Weight decreased [None]
  - Impaired work ability [None]
  - Decreased appetite [None]
  - Activities of daily living impaired [None]

NARRATIVE: CASE EVENT DATE: 20160907
